FAERS Safety Report 24528099 (Version 2)
Quarter: 2024Q4

REPORT INFORMATION
  Report Type: Spontaneous
  Country: CA (occurrence: CA)
  Receive Date: 20241021
  Receipt Date: 20241212
  Transmission Date: 20250115
  Serious: Yes (Hospitalization, Other)
  Sender: CELLTRION
  Company Number: CA-PFIZER INC-202400276016

PATIENT

DRUGS (3)
  1. INFLECTRA [Suspect]
     Active Substance: INFLIXIMAB-DYYB
     Indication: Crohn^s disease
     Dosage: 800 MG, EVERY 8 WEEKS
     Route: 042
     Dates: start: 20240815
  2. INFLECTRA [Suspect]
     Active Substance: INFLIXIMAB-DYYB
     Dosage: 800 MG, EVERY 8 WEEKS
     Route: 042
     Dates: start: 20241010
  3. INFLECTRA [Suspect]
     Active Substance: INFLIXIMAB-DYYB
     Dosage: 800 MG, 8 WEEKS (EVERY 8 WEEK)
     Route: 042
     Dates: start: 20241204

REACTIONS (6)
  - Nephrolithiasis [Recovered/Resolved]
  - Urosepsis [Recovered/Resolved]
  - Nephrolithiasis [Unknown]
  - Infusion site discomfort [Recovered/Resolved]
  - Infusion site swelling [Recovered/Resolved]
  - Infusion site extravasation [Recovered/Resolved]

NARRATIVE: CASE EVENT DATE: 20240101
